FAERS Safety Report 4357926-7 (Version None)
Quarter: 2004Q2

REPORT INFORMATION
  Report Type: 
  Country: None (occurrence: None)
  Receive Date: 20040510
  Receipt Date: 20040427
  Transmission Date: 20050107
  Serious: Yes (Other)
  Sender: FDA-Public Use
  Company Number: HQWYE637228APR04

PATIENT
  Age: 41 Year
  Sex: Female

DRUGS (5)
  1. CORDARONE [Suspect]
     Indication: ATRIAL FIBRILLATION
     Dosage: SEE IMAGE
     Dates: start: 20000301, end: 20000101
  2. CORDARONE [Suspect]
     Indication: ATRIAL FIBRILLATION
     Dosage: SEE IMAGE
     Dates: start: 20000101
  3. WARFARIN SODIUM [Suspect]
     Indication: CARDIAC ASSISTANCE DEVICE USER
     Dosage: SEE IMAGE
     Dates: end: 20000101
  4. WARFARIN SODIUM [Suspect]
     Indication: CARDIAC ASSISTANCE DEVICE USER
     Dosage: SEE IMAGE
     Dates: start: 20000101, end: 20010101
  5. WARFARIN SODIUM [Suspect]
     Indication: CARDIAC ASSISTANCE DEVICE USER
     Dosage: SEE IMAGE
     Dates: start: 20010101

REACTIONS (6)
  - ATRIAL FIBRILLATION [None]
  - DRUG INTERACTION [None]
  - HYPERTHYROIDISM [None]
  - HYPOTHYROIDISM [None]
  - INTERNATIONAL NORMALISED RATIO DECREASED [None]
  - INTERNATIONAL NORMALISED RATIO INCREASED [None]
